FAERS Safety Report 5660828-7 (Version None)
Quarter: 2008Q1

REPORT INFORMATION
  Report Type: 
  Country: None (occurrence: None)
  Receive Date: 20080311
  Receipt Date: 20080229
  Transmission Date: 20080703
  Serious: Yes (Other)
  Sender: FDA-Public Use
  Company Number: DE-WYE-H03012208

PATIENT

DRUGS (1)
  1. CORDAREX [Suspect]
     Indication: ATRIAL FIBRILLATION
     Dosage: UNSPECIFIED

REACTIONS (2)
  - HEPATOCELLULAR INJURY [None]
  - HYPOALBUMINAEMIA [None]
